FAERS Safety Report 5713188-7 (Version None)
Quarter: 2008Q2

REPORT INFORMATION
  Report Type: 
  Country: None (occurrence: None)
  Receive Date: 20080422
  Receipt Date: 19870514
  Transmission Date: 20081010
  Serious: Yes (Death, Other)
  Sender: FDA-Public Use
  Company Number: US-ROCHE-8335

PATIENT
  Age: 68 Year
  Sex: Female

DRUGS (12)
  1. GANCICLOVIR SODIUM [Suspect]
     Indication: CYTOMEGALOVIRUS INFECTION
     Route: 042
     Dates: start: 19870413, end: 19870415
  2. KAOPECTATE [Concomitant]
     Dates: start: 19870310
  3. KAOPECTATE [Concomitant]
     Dates: start: 19870310
  4. LOMOTIL [Concomitant]
     Dates: start: 19870310
  5. LOMOTIL [Concomitant]
     Dates: start: 19870310
  6. ZANTAC [Concomitant]
     Indication: DYSPEPSIA
     Dates: start: 19870407
  7. VANCOMYCIN [Concomitant]
     Indication: STAPHYLOCOCCAL BACTERAEMIA
     Dates: start: 19870310, end: 19870324
  8. DALMANE [Concomitant]
     Indication: SLEEP DISORDER
     Dates: start: 19870310
  9. TYLENOL W/ CODEINE [Concomitant]
     Indication: PAIN
     Dates: start: 19870310
  10. TYLENOL W/ CODEINE [Concomitant]
     Dates: start: 19870310
  11. TYLENOL W/ CODEINE [Concomitant]
     Dates: start: 19870310
  12. FLAGYL [Concomitant]
     Dates: start: 19870326, end: 19870405

REACTIONS (2)
  - DEATH [None]
  - THROMBOCYTOPENIA [None]
